FAERS Safety Report 9975639 (Version 1)
Quarter: 2014Q1

REPORT INFORMATION
  Report Type: Spontaneous
  Country: US (occurrence: US)
  Receive Date: 20140306
  Receipt Date: 20140306
  Transmission Date: 20141002
  Serious: No
  Sender: FDA-Public Use
  Company Number: US-ABBVIE-13P-163-1159789-00

PATIENT
  Sex: Female

DRUGS (2)
  1. HUMIRA [Suspect]
     Indication: RHEUMATOID ARTHRITIS
     Dosage: UNKNOWN FORM OF ADMINISTRATION
  2. ZOSTAVAX [Suspect]
     Indication: IMMUNISATION
     Dates: start: 201309, end: 201309

REACTIONS (6)
  - Skin hyperpigmentation [Not Recovered/Not Resolved]
  - Rash pustular [Recovered/Resolved with Sequelae]
  - Rash papular [Recovered/Resolved with Sequelae]
  - Varicella [Recovered/Resolved with Sequelae]
  - Immunisation [Unknown]
  - Vaccination error [Unknown]
